FAERS Safety Report 7298023-0 (Version None)
Quarter: 2011Q1

REPORT INFORMATION
  Report Type: 
  Country: None (occurrence: None)
  Receive Date: 20110217
  Receipt Date: 20110215
  Transmission Date: 20110831
  Serious: No
  Sender: FDA-Public Use
  Company Number: US-PFIZER INC-2011033676

PATIENT
  Sex: Male

DRUGS (3)
  1. ALLOPURINOL [Suspect]
     Dosage: UNK
  2. ASPIRIN [Suspect]
     Dosage: UNK
  3. LIPITOR [Suspect]
     Dosage: UNK

REACTIONS (1)
  - SOMNOLENCE [None]
